FAERS Safety Report 7496883-1 (Version None)
Quarter: 2011Q2

REPORT INFORMATION
  Report Type: 
  Country: None (occurrence: None)
  Receive Date: 20110516
  Receipt Date: 20110507
  Transmission Date: 20111010
  Serious: Yes (Life-Threatening, Hospitalization, Disabling)
  Sender: FDA-Public Use
  Company Number: GB-ACCORD-009012

PATIENT
  Age: 87 Year
  Sex: Male

DRUGS (12)
  1. FRUSEMIDE(FRUSEMIDE) [Concomitant]
     Indication: CARDIAC FAILURE
     Dosage: 40.00-MG-1.00 TIMES PER-1.0DAYS / ORAL
     Route: 048
  2. HYDROXOCOBALAMIN [Concomitant]
     Indication: VITAMIN B12 DEFICIENCY
     Dosage: 1.00-MG-
  3. SENNA(SENNA) [Concomitant]
     Indication: CONSTIPATION
     Dosage: 7.50-MG / ORAL
  4. ISONIAZIDE(ISONIAZIDE) [Concomitant]
     Indication: TUBERCULOSIS
  5. BISOPROLOL FUMARATE [Concomitant]
     Indication: CARDIAC FAILURE
     Dosage: 5.00-MG-1.00 TIMES PER-1.0DAYS / ORAL
     Route: 048
  6. SIMVASTATIN [Suspect]
     Indication: CARDIAC FAILURE
     Dosage: 40.00-MG-1.00 TIMES PER-1.0DAYS / ORAL
     Route: 048
  7. CITALOPRAM HYDROBROMIDE [Concomitant]
     Indication: DEPRESSION
     Dosage: 10.00-MG-1.00 TIMES PER-1.0DAYS / ORAL
     Route: 048
  8. FORTISIP(FORTISIP) [Concomitant]
     Indication: NUTRITIONAL SUPPORT
     Dosage: 1.00-DOSAGE-3.00 TIMES PER-1.0DAYS
  9. OMEPRAZOLE [Concomitant]
     Dosage: 20.00-MG-1.00 TIMES PER-1.0DAYS / ORAL
     Route: 048
  10. RAMIPRIL [Concomitant]
     Indication: CARDIAC FAILURE
     Dosage: 2.50-MG-1.00 TIMES PER-1.0DAYS / ORAL
     Route: 048
  11. RIFAMPICIN [Concomitant]
     Indication: TUBERCULOSIS
  12. PYRAZINAMIDE [Concomitant]
     Indication: TUBERCULOSIS

REACTIONS (4)
  - PULMONARY FIBROSIS [None]
  - DISEASE PROGRESSION [None]
  - BLOOD UREA INCREASED [None]
  - WEIGHT DECREASED [None]
